FAERS Safety Report 15000935 (Version 2)
Quarter: 2018Q2

REPORT INFORMATION
  Report Type: Report from Study
  Country: CA (occurrence: CA)
  Receive Date: 20180612
  Receipt Date: 20180620
  Transmission Date: 20180711
  Serious: Yes (Other)
  Sender: FDA-Public Use
  Company Number: PHHY2018CA017675

PATIENT
  Age: 46 Year
  Sex: Female

DRUGS (1)
  1. AFINITOR [Suspect]
     Active Substance: EVEROLIMUS
     Indication: BREAST CANCER
     Dosage: 10 MG, QD
     Route: 048
     Dates: start: 20180528

REACTIONS (15)
  - Metastases to lung [Unknown]
  - Loss of consciousness [Unknown]
  - Contusion [Unknown]
  - Blood pressure decreased [Unknown]
  - Nasopharyngitis [Unknown]
  - Influenza [Unknown]
  - Cough [Unknown]
  - Pain in extremity [Unknown]
  - Blood glucose decreased [Unknown]
  - Fall [Unknown]
  - Musculoskeletal chest pain [Unknown]
  - Dry throat [Unknown]
  - Throat irritation [Unknown]
  - Secretion discharge [Unknown]
  - Syncope [Unknown]

NARRATIVE: CASE EVENT DATE: 20180528
